FAERS Safety Report 4535692-X (Version None)
Quarter: 2004Q4

REPORT INFORMATION
  Report Type: 
  Country: None (occurrence: None)
  Receive Date: 20041223
  Receipt Date: 20031124
  Transmission Date: 20050328
  Serious: No
  Sender: FDA-Public Use
  Company Number: US-GLAXOSMITHKLINE-A0441008A

PATIENT
  Age: 56 Year
  Sex: Female

DRUGS (10)
  1. FLONASE [Suspect]
     Indication: RHINITIS
     Dosage: 1SPR PER DAY
     Route: 045
     Dates: start: 20031120, end: 20031120
  2. ROBITUSSIN AC [Concomitant]
  3. LIPITOR [Concomitant]
  4. ESTRACE [Concomitant]
  5. CALCIUM [Concomitant]
  6. GLUCOSAMINE [Concomitant]
  7. LAXATIVE [Concomitant]
  8. FISH OILS [Concomitant]
  9. VITAMIN E [Concomitant]
  10. OMNICEF [Concomitant]

REACTIONS (5)
  - ABDOMINAL PAIN UPPER [None]
  - CHEST PAIN [None]
  - HYPOAESTHESIA [None]
  - SKIN DISCOLOURATION [None]
  - VASODILATATION [None]
